FAERS Safety Report 13336214 (Version 2)
Quarter: 2017Q2

REPORT INFORMATION
  Report Type: Spontaneous
  Country: US (occurrence: US)
  Receive Date: 20170315
  Receipt Date: 20170614
  Transmission Date: 20170830
  Serious: Yes (Other)
  Sender: FDA-Public Use
  Company Number: US-ROCHE-1890103

PATIENT
  Sex: Female

DRUGS (2)
  1. ACTEMRA [Suspect]
     Active Substance: TOCILIZUMAB
     Route: 058
     Dates: start: 20170207
  2. ACTEMRA [Suspect]
     Active Substance: TOCILIZUMAB
     Indication: RHEUMATOID ARTHRITIS
     Route: 058
     Dates: start: 20161010

REACTIONS (14)
  - Pain in extremity [Unknown]
  - Palpitations [Unknown]
  - Headache [Unknown]
  - Swelling face [Unknown]
  - Weight increased [Unknown]
  - Abdominal distension [Unknown]
  - Burning sensation [Unknown]
  - Hypoaesthesia [Unknown]
  - Vomiting [Unknown]
  - Dizziness [Unknown]
  - Adrenal insufficiency [Unknown]
  - Diarrhoea [Unknown]
  - Abdominal pain upper [Unknown]
  - Paraesthesia [Unknown]
